FAERS Safety Report 19222356 (Version 1)
Quarter: 2021Q2

REPORT INFORMATION
  Report Type: Spontaneous
  Country: BE (occurrence: BE)
  Receive Date: 20210506
  Receipt Date: 20210506
  Transmission Date: 20210717
  Serious: Yes (Hospitalization, Other)
  Sender: FDA-Public Use
  Company Number: BE-ASTELLAS-2021US015542

PATIENT
  Age: 69 Year
  Sex: Female

DRUGS (4)
  1. SOLU?MEDROL [Concomitant]
     Active Substance: METHYLPREDNISOLONE SODIUM SUCCINATE
     Indication: PRODUCT USED FOR UNKNOWN INDICATION
     Route: 065
     Dates: start: 20200224
  2. SOLIFENACIN [Suspect]
     Active Substance: SOLIFENACIN
     Indication: BLADDER DISORDER
     Dosage: UNK UNK, UNKNOWN FREQ.
     Route: 065
  3. SIPONIMOD [Suspect]
     Active Substance: SIPONIMOD
     Indication: COGNITIVE DISORDER
  4. SIPONIMOD [Suspect]
     Active Substance: SIPONIMOD
     Indication: SECONDARY PROGRESSIVE MULTIPLE SCLEROSIS
     Dosage: UNK UNK, UNKNOWN FREQ.
     Route: 048
     Dates: start: 202007, end: 202102

REACTIONS (6)
  - Lymphocyte count decreased [Unknown]
  - Hallucination [Not Recovered/Not Resolved]
  - Infection [Unknown]
  - Personality change [Unknown]
  - Confusional state [Unknown]
  - Visual impairment [Unknown]

NARRATIVE: CASE EVENT DATE: 202101
